FAERS Safety Report 5394114-X (Version None)
Quarter: 2007Q3

REPORT INFORMATION
  Report Type: 
  Country: None (occurrence: None)
  Receive Date: 20070720
  Receipt Date: 20070720
  Transmission Date: 20080115
  Serious: Yes (Hospitalization)
  Sender: FDA-Public Use
  Company Number: None

PATIENT
  Sex: Female
  Weight: 66 kg

DRUGS (5)
  1. CYCLOPHOSPHAMIDE [Suspect]
     Dosage: 1700 MG
     Dates: end: 20070702
  2. CYTARABINE [Suspect]
     Dosage: 10200 MG
     Dates: end: 20070705
  3. G-CSF (FILGRASTIM, AMGEN) [Suspect]
     Dosage: 3000 MCG
     Dates: end: 20070717
  4. ELSPAR [Suspect]
     Dosage: 10000 UNIT
  5. METHOTREXATE [Suspect]
     Dosage: 15 MG
     Dates: end: 20070702

REACTIONS (9)
  - BACILLUS INFECTION [None]
  - BACTERIA BLOOD IDENTIFIED [None]
  - BALANCE DISORDER [None]
  - BLOOD PRESSURE DIASTOLIC DECREASED [None]
  - DIZZINESS [None]
  - FEBRILE NEUTROPENIA [None]
  - HEADACHE [None]
  - HEART RATE INCREASED [None]
  - RESPIRATORY RATE INCREASED [None]
